FAERS Safety Report 10125819 (Version 2)
Quarter: 2014Q2

REPORT INFORMATION
  Report Type: Spontaneous
  Country: CN (occurrence: CN)
  Receive Date: 20140425
  Receipt Date: 20140515
  Transmission Date: 20141212
  Serious: Yes (Hospitalization)
  Sender: FDA-Public Use
  Company Number: CN-JNJFOC-20140411477

PATIENT
  Age: 55 Year
  Sex: Female

DRUGS (7)
  1. TYLENOL [Suspect]
     Route: 048
  2. TYLENOL [Suspect]
     Indication: PYREXIA
     Route: 048
     Dates: start: 20130429, end: 20130501
  3. CEFUROXIME SODIUM [Suspect]
     Indication: COUGH
     Route: 042
     Dates: start: 20130429, end: 20130501
  4. CEFUROXIME SODIUM [Suspect]
     Indication: PYREXIA
     Route: 042
     Dates: start: 20130429, end: 20130501
  5. CEFACLOR [Suspect]
     Indication: COUGH
     Route: 048
     Dates: start: 20130429, end: 20130501
  6. CEFACLOR [Suspect]
     Indication: PYREXIA
     Route: 048
     Dates: start: 20130429, end: 20130501
  7. DIPYRONE [Suspect]
     Indication: PYREXIA
     Route: 048
     Dates: start: 20130501, end: 20130502

REACTIONS (2)
  - Drug eruption [Recovering/Resolving]
  - Mouth ulceration [Unknown]
